FAERS Safety Report 5867254-6 (Version None)
Quarter: 2008Q3

REPORT INFORMATION
  Report Type: 
  Country: None (occurrence: None)
  Receive Date: 20080902
  Receipt Date: 20080825
  Transmission Date: 20090109
  Serious: Yes (Hospitalization, Other)
  Sender: FDA-Public Use
  Company Number: FR-MERCK-0808FRA00043

PATIENT
  Age: 38 Year
  Sex: Female

DRUGS (23)
  1. EMEND [Suspect]
     Indication: PROPHYLAXIS OF NAUSEA AND VOMITING
     Route: 048
     Dates: start: 20080429, end: 20080429
  2. EMEND [Suspect]
     Route: 048
     Dates: start: 20080430, end: 20080501
  3. EMEND [Suspect]
     Route: 048
     Dates: start: 20080604, end: 20080604
  4. EMEND [Suspect]
     Route: 048
     Dates: start: 20080605, end: 20080606
  5. CYCLOPHOSPHAMIDE [Suspect]
     Indication: BREAST CANCER METASTATIC
     Route: 042
     Dates: start: 20080319
  6. CYCLOPHOSPHAMIDE [Suspect]
     Route: 042
     Dates: start: 20080410
  7. CYCLOPHOSPHAMIDE [Suspect]
     Route: 042
     Dates: start: 20080429
  8. EPIRUBICIN HYDROCHLORIDE [Suspect]
     Indication: BREAST CANCER METASTATIC
     Route: 042
     Dates: start: 20080319
  9. EPIRUBICIN HYDROCHLORIDE [Suspect]
     Route: 041
     Dates: start: 20080410
  10. EPIRUBICIN HYDROCHLORIDE [Suspect]
     Route: 042
     Dates: start: 20080429
  11. FLUOROURACIL [Suspect]
     Indication: BREAST CANCER METASTATIC
     Route: 042
     Dates: start: 20080319
  12. FLUOROURACIL [Suspect]
     Route: 042
     Dates: start: 20080410
  13. FLUOROURACIL [Suspect]
     Route: 042
     Dates: start: 20080429
  14. PEGFILGRASTIM [Concomitant]
     Indication: PROPHYLAXIS
     Route: 058
     Dates: start: 20080319
  15. PEGFILGRASTIM [Concomitant]
     Route: 058
     Dates: start: 20080410
  16. PEGFILGRASTIM [Concomitant]
     Route: 058
     Dates: start: 20080429
  17. DOCETAXEL [Suspect]
     Indication: BREAST CANCER METASTATIC
     Route: 042
     Dates: start: 20080604
  18. DOCETAXEL [Suspect]
     Route: 042
     Dates: start: 20080703
  19. DOCETAXEL [Suspect]
     Route: 042
     Dates: start: 20080731
  20. LENOGRASTIM [Concomitant]
     Indication: PROPHYLAXIS
     Route: 058
     Dates: start: 20080607, end: 20080614
  21. LENOGRASTIM [Concomitant]
     Route: 058
     Dates: start: 20080626, end: 20080630
  22. LENOGRASTIM [Concomitant]
     Route: 058
     Dates: start: 20080724, end: 20080728
  23. LENOGRASTIM [Concomitant]
     Route: 058
     Dates: start: 20080528

REACTIONS (3)
  - LEUKOPENIA [None]
  - NEUTROPENIA [None]
  - PANCYTOPENIA [None]
